FAERS Safety Report 15566905 (Version 3)
Quarter: 2020Q1

REPORT INFORMATION
  Report Type: Spontaneous
  Country: US (occurrence: US)
  Receive Date: 20181030
  Receipt Date: 20200114
  Transmission Date: 20200409
  Serious: Yes (Other)
  Sender: FDA-Public Use
  Company Number: US-PFIZER INC-2017207059

PATIENT
  Age: 68 Year
  Sex: Female

DRUGS (15)
  1. ASPIR 81 [Concomitant]
     Active Substance: ASPIRIN
     Dosage: 1 DF, DAILY
     Route: 048
  2. METOPROLOL TARTRATE. [Concomitant]
     Active Substance: METOPROLOL TARTRATE
     Dosage: 50 MG, 2X/DAY
     Route: 048
  3. VITAMIN E [Concomitant]
     Active Substance: .ALPHA.-TOCOPHEROL
     Dosage: UNK
  4. LEVOTHYROXINE. [Concomitant]
     Active Substance: LEVOTHYROXINE
     Dosage: 100 UG, DAILY (EVERY DAY)
     Route: 048
  5. HYDROCHLOROTHIAZIDE. [Concomitant]
     Active Substance: HYDROCHLOROTHIAZIDE
     Dosage: 25 MG, DAILY (EVERY DAY)
     Route: 048
  6. OMEPRAZOLE. [Concomitant]
     Active Substance: OMEPRAZOLE
     Dosage: 40 MG, DAILY (EVERY DAY BEFORE A MEAL)
  7. WELCHOL [Concomitant]
     Active Substance: COLESEVELAM HYDROCHLORIDE
     Dosage: 1250 MG, 3X/DAY
  8. METFORMIN [Concomitant]
     Active Substance: METFORMIN HYDROCHLORIDE
     Dosage: 850 MG, 2X/DAY (WITH MORNING AND EVENING MEALS)
     Route: 048
  9. VITAMIN B12 [Concomitant]
     Active Substance: CYANOCOBALAMIN
     Dosage: UNK
  10. LYRICA [Suspect]
     Active Substance: PREGABALIN
     Indication: NEUROPATHY PERIPHERAL
     Dosage: 50 MG, 1X/DAY (TAKE 1 CAPSULE A DAY FOR 10 DAYS THEN TWICE A DAY)
  11. LYRICA [Suspect]
     Active Substance: PREGABALIN
     Dosage: 50 MG, 2X/DAY
  12. GLIMEPIRIDE. [Concomitant]
     Active Substance: GLIMEPIRIDE
     Dosage: 1 MG, 2X/DAY
  13. LYRICA [Suspect]
     Active Substance: PREGABALIN
     Dosage: 50 MG, 3X/DAY
  14. LOSARTAN. [Concomitant]
     Active Substance: LOSARTAN
     Dosage: 100 MG, DAILY (EVERY DAY)
     Route: 048
  15. CLOBETASOL [Concomitant]
     Active Substance: CLOBETASOL
     Dosage: UNK, 2X/DAY
     Route: 061

REACTIONS (3)
  - Product use issue [Unknown]
  - Intentional product misuse [Unknown]
  - Diabetes mellitus [Unknown]
